FAERS Safety Report 13004928 (Version 1)
Quarter: 2016Q4

REPORT INFORMATION
  Report Type: Spontaneous
  Country: US (occurrence: US)
  Receive Date: 20161207
  Receipt Date: 20161207
  Transmission Date: 20170207
  Serious: Yes (Other)
  Sender: FDA-Public Use
  Company Number: US-AMGEN-USASP2016170018

PATIENT
  Age: 63 Year
  Sex: Male

DRUGS (1)
  1. IMLYGIC [Suspect]
     Active Substance: TALIMOGENE LAHERPAREPVEC
     Indication: MALIGNANT MELANOMA
     Dosage: 4 ML, CYCLICAL (108, 4 MLS, TAKING A 10-14 DAY BREAK)
     Route: 065

REACTIONS (3)
  - Tumour haemorrhage [Recovered/Resolved]
  - Tumour necrosis [Recovering/Resolving]
  - Incorrect product storage [Unknown]

NARRATIVE: CASE EVENT DATE: 2016
